FAERS Safety Report 5210577-4 (Version None)
Quarter: 2006Q4

REPORT INFORMATION
  Report Type: 
  Country: None (occurrence: None)
  Receive Date: 20061106
  Receipt Date: 20060926
  Transmission Date: 20070319
  Serious: No
  Sender: FDA-Public Use
  Company Number: VNL_0219_2006

PATIENT
  Age: 77 Year
  Sex: Male

DRUGS (1)
  1. APOKYN [Suspect]
     Indication: PARKINSON'S DISEASE
     Dosage: 0.2 ML ONCE SC
     Route: 058
     Dates: start: 20060921

REACTIONS (5)
  - COMMUNICATION DISORDER [None]
  - DROOLING [None]
  - DYSSTASIA [None]
  - LETHARGY [None]
  - ORTHOSTATIC HYPOTENSION [None]
